FAERS Safety Report 7910689-8 (Version None)
Quarter: 2011Q4

REPORT INFORMATION
  Report Type: 
  Country: None (occurrence: None)
  Receive Date: 20111111
  Receipt Date: 20111107
  Transmission Date: 20120403
  Serious: Yes (Life-Threatening, Hospitalization, Disabling, Other)
  Sender: FDA-Public Use
  Company Number: CA-ASTRAZENECA-2011SE67229

PATIENT
  Age: 73 Year
  Sex: Female
  Weight: 74 kg

DRUGS (12)
  1. LORAZEPAM [Concomitant]
     Route: 065
  2. CELEBREX [Concomitant]
     Route: 048
  3. METOPROLOL [Concomitant]
     Route: 048
  4. NITROGLYCERIN [Concomitant]
     Route: 065
  5. RATIO-LENOLTEC NO2 [Concomitant]
     Route: 065
  6. CRESTOR [Suspect]
     Route: 048
  7. RAMIPRIL [Concomitant]
     Route: 048
  8. NOVO-RABEPRAZOLE EC [Suspect]
     Route: 048
  9. RATIO-LENOLTEC NO3 [Concomitant]
     Route: 065
  10. WARFARIN SODIUM [Concomitant]
     Route: 065
  11. ALENDRONATE SODIUM [Concomitant]
     Route: 048
  12. SULFAMETHOXAZOLE AND TRIMETHOPRIM [Concomitant]
     Route: 048

REACTIONS (17)
  - BLOOD ALBUMIN ABNORMAL [None]
  - BLOOD PARATHYROID HORMONE INCREASED [None]
  - BLOOD CREATINE PHOSPHOKINASE INCREASED [None]
  - VOMITING [None]
  - HAEMOGLOBIN DECREASED [None]
  - SERUM FERRITIN INCREASED [None]
  - DYSARTHRIA [None]
  - IMMOBILE [None]
  - ALANINE AMINOTRANSFERASE INCREASED [None]
  - NAUSEA [None]
  - ASPARTATE AMINOTRANSFERASE INCREASED [None]
  - BLOOD CREATININE INCREASED [None]
  - BLOOD BILIRUBIN ABNORMAL [None]
  - RHABDOMYOLYSIS [None]
  - FATIGUE [None]
  - ANURIA [None]
  - RENAL FAILURE ACUTE [None]
